FAERS Safety Report 10190505 (Version 1)
Quarter: 2014Q2

REPORT INFORMATION
  Report Type: Spontaneous
  Country: US (occurrence: US)
  Receive Date: 20140522
  Receipt Date: 20140522
  Transmission Date: 20141212
  Serious: No
  Sender: FDA-Public Use
  Company Number: US-SA-2014SA045904

PATIENT
  Age: 42 Year
  Sex: Female

DRUGS (3)
  1. ELOXATIN [Suspect]
     Indication: COLON CANCER
     Route: 065
  2. 5-FU [Suspect]
     Indication: COLON CANCER
     Route: 065
  3. FOLINIC ACID [Suspect]
     Indication: COLON CANCER
     Route: 065

REACTIONS (3)
  - Dihydropyrimidine dehydrogenase deficiency [Unknown]
  - Differential white blood cell count abnormal [Unknown]
  - Mucosal inflammation [Unknown]
